FAERS Safety Report 7298341-6 (Version None)
Quarter: 2011Q1

REPORT INFORMATION
  Report Type: 
  Country: None (occurrence: None)
  Receive Date: 20110208
  Receipt Date: 20110128
  Transmission Date: 20110831
  Serious: Yes (Hospitalization)
  Sender: FDA-Public Use
  Company Number: 20110083

PATIENT
  Age: 85 Year
  Sex: Male

DRUGS (2)
  1. CYANOCOBALAMIN INJ [Suspect]
     Indication: VITAMIN A
     Dosage: 1000 MCG, SUBCUTANEOUS
     Route: 058
     Dates: start: 20110120
  2. CYANOCOBALAMIN [Suspect]
     Indication: VITAMIN A
     Dosage: 1000 MCG, SUBCUTANEOUS
     Route: 058

REACTIONS (2)
  - JOINT INJURY [None]
  - FALL [None]
